FAERS Safety Report 17428595 (Version 1)
Quarter: 2020Q1

REPORT INFORMATION
  Report Type: Spontaneous
  Country: US (occurrence: US)
  Receive Date: 20200131
  Receipt Date: 20200131
  Transmission Date: 20200409
  Serious: Yes (Other)
  Sender: FDA-Public Use
  Company Number: None

PATIENT
  Age: 19 Year
  Sex: Female
  Weight: 29.3 kg

DRUGS (13)
  1. TYLENOL [Concomitant]
     Active Substance: ACETAMINOPHEN
  2. BENADRYL [Concomitant]
     Active Substance: DIPHENHYDRAMINE HYDROCHLORIDE
  3. ERYTHROMYCIN. [Concomitant]
     Active Substance: ERYTHROMYCIN
  4. REFRESH EYE DROPS [Concomitant]
  5. SYNTHROID [Concomitant]
     Active Substance: LEVOTHYROXINE SODIUM
  6. MOTRIN [Concomitant]
     Active Substance: IBUPROFEN
  7. BRIMONIDINE [Concomitant]
     Active Substance: BRIMONIDINE TARTRATE
  8. BARICITINIB 2MG. ELI LILLY [Suspect]
     Active Substance: BARICITINIB
     Indication: AICARDI-GOUTIERES SYNDROME
     Route: 048
     Dates: start: 20191007
  9. ACYCLOVIR. [Concomitant]
     Active Substance: ACYCLOVIR
  10. CEFTRIAXONE. [Concomitant]
     Active Substance: CEFTRIAXONE
  11. IRON [Concomitant]
     Active Substance: IRON
  12. MIRALAX [Concomitant]
     Active Substance: POLYETHYLENE GLYCOL 3350
  13. COSOPT [Concomitant]
     Active Substance: DORZOLAMIDE HYDROCHLORIDE\TIMOLOL MALEATE

REACTIONS (2)
  - Haemoglobin decreased [None]
  - Therapy change [None]

NARRATIVE: CASE EVENT DATE: 20200118
